FAERS Safety Report 7106564-1 (Version None)
Quarter: 2010Q4

REPORT INFORMATION
  Report Type: 
  Country: None (occurrence: None)
  Receive Date: 20101116
  Receipt Date: 20101108
  Transmission Date: 20110411
  Serious: Yes (Death, Hospitalization)
  Sender: FDA-Public Use
  Company Number: US-ELI_LILLY_AND_COMPANY-US201011003034

PATIENT
  Age: 40 Year
  Sex: Male

DRUGS (1)
  1. GEMZAR [Suspect]
     Dosage: 1000 MG/M2, ON DAYS1 AND 8 EVERY 21 DAYS
     Route: 042

REACTIONS (3)
  - INTERSTITIAL LUNG DISEASE [None]
  - LUNG INFECTION PSEUDOMONAL [None]
  - PNEUMONIA NECROTISING [None]
